FAERS Safety Report 7535803-8 (Version None)
Quarter: 2011Q2

REPORT INFORMATION
  Report Type: 
  Country: None (occurrence: None)
  Receive Date: 20110524
  Receipt Date: 20110203
  Transmission Date: 20111010
  Serious: Yes (Other)
  Sender: FDA-Public Use
  Company Number: 025041

PATIENT
  Sex: Female
  Weight: 77.1 kg

DRUGS (7)
  1. CIMZIA [Suspect]
     Indication: CROHN'S DISEASE
     Dosage: (400 MG 1X/MONTH SUBCUTANEOUS)
     Route: 058
     Dates: start: 20101002
  2. METHOTREXATE [Concomitant]
  3. VITAMIN B12 [Concomitant]
  4. QVAR 40 [Concomitant]
  5. CALCIUM CARBONATE [Concomitant]
  6. FOSAMAX [Concomitant]
  7. TYLENOL (CAPLET) [Concomitant]

REACTIONS (8)
  - ASTHENIA [None]
  - INJECTION SITE PAIN [None]
  - DRUG INEFFECTIVE [None]
  - FREQUENT BOWEL MOVEMENTS [None]
  - FATIGUE [None]
  - INJECTION SITE MASS [None]
  - ARTHRALGIA [None]
  - SLEEP DISORDER [None]
